FAERS Safety Report 23789244 (Version 2)
Quarter: 2024Q2

REPORT INFORMATION
  Report Type: Spontaneous
  Country: US (occurrence: US)
  Receive Date: 20240426
  Receipt Date: 20240531
  Transmission Date: 20240716
  Serious: No
  Sender: FDA-Public Use
  Company Number: US-PFIZER INC-PV202200036129

PATIENT
  Age: 51 Year
  Sex: Female
  Weight: 93.89 kg

DRUGS (3)
  1. PREMARIN [Suspect]
     Active Substance: ESTROGENS, CONJUGATED
     Indication: Hormone replacement therapy
     Dosage: USE 1 GRAM ON FINGER VAGINALLY EVERY OTHER NIGHT X 2 WEEKS THEN 2 X PER WEEK
     Route: 067
  2. PREMARIN [Suspect]
     Active Substance: ESTROGENS, CONJUGATED
     Dosage: 0.625 MG, TWICE A WEEK
  3. LINZESS [Concomitant]
     Active Substance: LINACLOTIDE
     Indication: Abdominal discomfort
     Dosage: UNK

REACTIONS (6)
  - Hot flush [Unknown]
  - Mood swings [Unknown]
  - Insomnia [Unknown]
  - Off label use [Unknown]
  - Product use issue [Unknown]
  - Wrong technique in product usage process [Unknown]
